FAERS Safety Report 18031179 (Version 1)
Quarter: 2020Q3

REPORT INFORMATION
  Report Type: Spontaneous
  Country: US (occurrence: US)
  Receive Date: 20200716
  Receipt Date: 20200716
  Transmission Date: 20201103
  Serious: No
  Sender: FDA-Public Use
  Company Number: US-HISAMITSU PHARMACEUTICAL CO., INC.-2020US003005

PATIENT
  Age: 30 Year
  Sex: Male

DRUGS (1)
  1. SECUADO [Suspect]
     Active Substance: ASENAPINE
     Indication: PRODUCT USED FOR UNKNOWN INDICATION
     Dosage: 7.6 MG, DAILY
     Route: 062
     Dates: start: 20200512

REACTIONS (1)
  - Application site dermatitis [Recovering/Resolving]

NARRATIVE: CASE EVENT DATE: 202005
